FAERS Safety Report 7263772-7 (Version None)
Quarter: 2011Q1

REPORT INFORMATION
  Report Type: 
  Country: None (occurrence: None)
  Receive Date: 20110130
  Receipt Date: 20101108
  Transmission Date: 20110831
  Serious: No
  Sender: FDA-Public Use
  Company Number: US-ABBOTT-10P-163-0684214-00

PATIENT
  Age: 56 Year
  Sex: Male

DRUGS (2)
  1. VERAPAMIL [Concomitant]
     Indication: PRODUCT USED FOR UNKNOWN INDICATION
  2. HUMIRA [Suspect]
     Indication: PSORIASIS
     Route: 058
     Dates: start: 20100701

REACTIONS (9)
  - SINUS CONGESTION [None]
  - VISION BLURRED [None]
  - RHINORRHOEA [None]
  - SNEEZING [None]
  - MALAISE [None]
  - HEART RATE INCREASED [None]
  - RESPIRATORY TRACT CONGESTION [None]
  - NASOPHARYNGITIS [None]
  - BLOOD PRESSURE INCREASED [None]
